FAERS Safety Report 6919476-0 (Version None)
Quarter: 2010Q3

REPORT INFORMATION
  Report Type: 
  Country: None (occurrence: None)
  Receive Date: 20100811
  Receipt Date: 20100809
  Transmission Date: 20110219
  Serious: Yes (Hospitalization)
  Sender: FDA-Public Use
  Company Number: D0067931A

PATIENT
  Age: 76 Year
  Sex: Female
  Weight: 43 kg

DRUGS (3)
  1. REQUIP [Suspect]
     Indication: PARKINSON'S DISEASE
     Dosage: 1MG FOUR TIMES PER DAY
     Route: 048
     Dates: start: 20060101, end: 20070101
  2. SEROQUEL [Concomitant]
     Indication: HALLUCINATION
     Dosage: 25MG TWICE PER DAY
     Route: 048
     Dates: start: 20060101, end: 20070101
  3. MADOPAR [Concomitant]
     Indication: PARKINSON'S DISEASE
     Dosage: 125MG UNKNOWN
     Route: 048

REACTIONS (2)
  - DRUG INEFFECTIVE [None]
  - HALLUCINATION [None]
